FAERS Safety Report 24528507 (Version 3)
Quarter: 2024Q4

REPORT INFORMATION
  Report Type: Spontaneous
  Country: JP (occurrence: JP)
  Receive Date: 20241021
  Receipt Date: 20241112
  Transmission Date: 20250115
  Serious: Yes (Death, Hospitalization, Other)
  Sender: JOHNSON AND JOHNSON
  Company Number: JP-BAYER-2024A147554

PATIENT
  Age: 84 Year
  Sex: Male

DRUGS (2)
  1. XARELTO [Suspect]
     Active Substance: RIVAROXABAN
     Indication: Atrial fibrillation
     Route: 048
  2. XARELTO [Suspect]
     Active Substance: RIVAROXABAN
     Indication: Ischaemic stroke
     Route: 048

REACTIONS (11)
  - Death [Fatal]
  - Cerebral haemorrhage [Unknown]
  - Subarachnoid haemorrhage [Unknown]
  - Intracranial haematoma [Unknown]
  - Brain oedema [Unknown]
  - Brain herniation [Unknown]
  - Haemorrhagic infarction [Unknown]
  - Hemiparesis [Unknown]
  - Altered state of consciousness [Unknown]
  - Cerebral mass effect [Unknown]
  - Contraindicated product administered [Unknown]
